FAERS Safety Report 20557033 (Version 2)
Quarter: 2022Q1

REPORT INFORMATION
  Report Type: Spontaneous
  Country: US (occurrence: None)
  Receive Date: 20220307
  Receipt Date: 20220311
  Transmission Date: 20220423
  Serious: Yes (Hospitalization)
  Sender: FDA-Public Use
  Company Number: US-ROCHE-3040893

PATIENT
  Sex: Female
  Weight: 65.830 kg

DRUGS (3)
  1. AVASTIN [Suspect]
     Active Substance: BEVACIZUMAB
     Indication: Diabetic retinopathy
     Dosage: INJECTED INTO BOTH EYES SEPARATELY , EVERY 2 WEEKS ALTERNATING EYES
     Route: 065
  2. AVASTIN [Suspect]
     Active Substance: BEVACIZUMAB
     Dosage: INJECTED INTO BOTH EYES ;ONGOING: NO
     Route: 065
  3. LOSARTAN [Concomitant]
     Active Substance: LOSARTAN
     Indication: Hypertension
     Route: 048

REACTIONS (10)
  - Cerebrovascular accident [Recovered/Resolved with Sequelae]
  - Cardiac disorder [Recovered/Resolved]
  - Balance disorder [Not Recovered/Not Resolved]
  - Eye pain [Unknown]
  - Conjunctivitis [Recovered/Resolved]
  - Amnesia [Not Recovered/Not Resolved]
  - Fatigue [Unknown]
  - Insomnia [Not Recovered/Not Resolved]
  - Hypotension [Unknown]
  - Off label use [Unknown]

NARRATIVE: CASE EVENT DATE: 20200101
